FAERS Safety Report 23674882 (Version 1)
Quarter: 2024Q1

REPORT INFORMATION
  Report Type: Spontaneous
  Country: US (occurrence: US)
  Receive Date: 20240326
  Receipt Date: 20240326
  Transmission Date: 20240409
  Serious: No
  Sender: FDA-Public Use
  Company Number: US-Covis Pharma GmbH-2024COV00254

PATIENT
  Age: 66 Year
  Sex: Female

DRUGS (4)
  1. RILUZOLE [Suspect]
     Active Substance: RILUZOLE
     Route: 048
  2. RELYVRIO [Suspect]
     Active Substance: SODIUM PHENYLBUTYRATE\TAURURSODIOL
     Indication: Amyotrophic lateral sclerosis
     Dosage: 1 DOSAGE FORM 1 SACHET ONCE DAILY FOR 3 WEEKS, THEN 1 SACHET TWICE DAILY, 2/DAYS
     Route: 048
     Dates: start: 202303
  3. RELYVRIO [Suspect]
     Active Substance: SODIUM PHENYLBUTYRATE\TAURURSODIOL
     Dosage: 2 DOSAGE FORM 1 SACHET ONCE DAILY FOR 3 WEEKS, THEN 1 SACHET TWICE DAILY, EVERY 1 DAYS
     Route: 048
     Dates: start: 202302
  4. RADICAVA [Suspect]
     Active Substance: EDARAVONE
     Dosage: 1 DOSAGE FORM 1 TIME A DAY FOR 14 DAYS ON, THEN 14 DAYS OFF, BY MOUTH OR FEEDING TUBE, EVERY 1 DAYS
     Route: 048

REACTIONS (3)
  - Joint swelling [Not Recovered/Not Resolved]
  - Peripheral swelling [Unknown]
  - Feeling abnormal [Unknown]
